FAERS Safety Report 6525974-4 (Version None)
Quarter: 2010Q1

REPORT INFORMATION
  Report Type: 
  Country: None (occurrence: None)
  Receive Date: 20100104
  Receipt Date: 20091019
  Transmission Date: 20100710
  Serious: Yes (Other)
  Sender: FDA-Public Use
  Company Number: CN-ELI_LILLY_AND_COMPANY-CN200910004533

PATIENT
  Age: 20 Year
  Sex: Female
  Weight: 46 kg

DRUGS (3)
  1. ZYPREXA [Suspect]
     Indication: MANIA
     Dosage: 5 MG, DAILY (1/D)
     Route: 048
     Dates: start: 20091016, end: 20091016
  2. VALPROATE SODIUM [Concomitant]
     Indication: MANIA
     Dosage: 200 MG, UNKNOWN
     Route: 048
     Dates: start: 20091016, end: 20091016
  3. LITHIUM CARBONATE [Concomitant]
     Indication: MANIA
     Dosage: 250 MG, UNKNOWN
     Route: 048
     Dates: start: 20091016, end: 20091016

REACTIONS (1)
  - HEART RATE DECREASED [None]
